FAERS Safety Report 20891867 (Version 2)
Quarter: 2022Q3

REPORT INFORMATION
  Report Type: Spontaneous
  Country: DE (occurrence: DE)
  Receive Date: 20220530
  Receipt Date: 20220715
  Transmission Date: 20221027
  Serious: Yes (Other)
  Sender: FDA-Public Use
  Company Number: DE-ViiV Healthcare Limited-DE2022EME084939

PATIENT

DRUGS (2)
  1. DOVATO [Suspect]
     Active Substance: DOLUTEGRAVIR SODIUM\LAMIVUDINE
     Indication: HIV infection
     Dosage: UNK
  2. TILIDINE [Suspect]
     Active Substance: TILIDINE
     Indication: Bone contusion
     Dosage: UNK

REACTIONS (4)
  - Pathogen resistance [Unknown]
  - Bone contusion [Unknown]
  - Schizophrenia [Unknown]
  - Therapeutic product effect decreased [Unknown]
